FAERS Safety Report 13005410 (Version 1)
Quarter: 2016Q4

REPORT INFORMATION
  Report Type: Report from Study
  Country: JP (occurrence: JP)
  Receive Date: 20161207
  Receipt Date: 20161207
  Transmission Date: 20170207
  Serious: Yes (Other)
  Sender: FDA-Public Use
  Company Number: JP-INCYTE CORPORATION-2016IN007127

PATIENT
  Age: 69 Year
  Sex: Female

DRUGS (1)
  1. JAKAVI [Suspect]
     Active Substance: RUXOLITINIB
     Indication: MYELOFIBROSIS
     Dosage: 25 MG, BID
     Route: 048
     Dates: start: 20160317

REACTIONS (2)
  - Interstitial lung disease [Not Recovered/Not Resolved]
  - Restrictive pulmonary disease [Unknown]

NARRATIVE: CASE EVENT DATE: 20161102
